FAERS Safety Report 9261997 (Version 1)
Quarter: 2013Q2

REPORT INFORMATION
  Report Type: Spontaneous
  Country: US (occurrence: US)
  Receive Date: 20130429
  Receipt Date: 20130429
  Transmission Date: 20140414
  Serious: Yes (Death)
  Sender: FDA-Public Use
  Company Number: US-ALLERGAN-1306072US

PATIENT
  Sex: Female

DRUGS (1)
  1. TAZORAC CREAM 0.05% [Suspect]
     Indication: PRODUCT USED FOR UNKNOWN INDICATION
     Route: 015

REACTIONS (2)
  - Foetal exposure during pregnancy [Fatal]
  - Skeletal dysplasia [Fatal]
